FAERS Safety Report 8251074-1 (Version None)
Quarter: 2012Q2

REPORT INFORMATION
  Report Type: 
  Country: None (occurrence: None)
  Receive Date: 20120402
  Receipt Date: 20120321
  Transmission Date: 20120825
  Serious: Yes (Hospitalization)
  Sender: FDA-Public Use
  Company Number: JP-BRISTOL-MYERS SQUIBB COMPANY-15772965

PATIENT
  Age: 64 Year
  Sex: Female

DRUGS (1)
  1. SPRYCEL [Suspect]
     Indication: ACUTE LYMPHOCYTIC LEUKAEMIA
     Dosage: INTERRUPTED ON 16MAY11 70X2 MG/DAY RESTR ON UNKNOWN DT 50MG/D IS ALSO TKN
     Route: 048
     Dates: start: 20110330, end: 20120219

REACTIONS (4)
  - INTERSTITIAL LUNG DISEASE [None]
  - LIVER DISORDER [None]
  - PYREXIA [None]
  - PLATELET COUNT DECREASED [None]
